FAERS Safety Report 7328670-9 (Version None)
Quarter: 2011Q1

REPORT INFORMATION
  Report Type: 
  Country: None (occurrence: None)
  Receive Date: 20110303
  Receipt Date: 20110223
  Transmission Date: 20110831
  Serious: Yes (Life-Threatening, Hospitalization)
  Sender: FDA-Public Use
  Company Number: JP-JNJFOC-20101100432

PATIENT
  Sex: Female
  Weight: 39 kg

DRUGS (8)
  1. REMICADE [Suspect]
     Route: 042
  2. REMICADE [Suspect]
     Route: 042
  3. REMICADE [Suspect]
     Route: 042
  4. REMICADE [Suspect]
     Route: 042
  5. REMICADE [Suspect]
     Route: 042
  6. REMICADE [Suspect]
     Route: 042
  7. REMICADE [Suspect]
     Indication: CROHN'S DISEASE
     Route: 042
  8. REMICADE [Suspect]
     Route: 042

REACTIONS (5)
  - PERITONITIS [None]
  - OVARIAN CANCER [None]
  - ANAL ABSCESS [None]
  - ILEAL STENOSIS [None]
  - SURGERY [None]
